FAERS Safety Report 13078858 (Version 1)
Quarter: 2017Q1

REPORT INFORMATION
  Report Type: Spontaneous
  Country: US (occurrence: US)
  Receive Date: 20170102
  Receipt Date: 20170102
  Transmission Date: 20170428
  Serious: Yes (Other)
  Sender: FDA-Public Use
  Company Number: US-BEH-2016076756

PATIENT
  Sex: Female
  Weight: 94.33 kg

DRUGS (16)
  1. OXYCODONE [Concomitant]
     Active Substance: OXYCODONE
  2. QVAR [Concomitant]
     Active Substance: BECLOMETHASONE DIPROPIONATE
  3. LISINOPRIL                         /00894002/ [Concomitant]
     Active Substance: LISINOPRIL
  4. SODIUM CHLORIDE. [Concomitant]
     Active Substance: SODIUM CHLORIDE
  5. ZEMAIRA [Suspect]
     Active Substance: .ALPHA.1-PROTEINASE INHIBITOR HUMAN
     Indication: ALPHA-1 ANTI-TRYPSIN DEFICIENCY
     Dosage: 60 MG/KG, QW
     Route: 042
     Dates: start: 20141022
  6. KLONOPIN [Concomitant]
     Active Substance: CLONAZEPAM
  7. DEPAKOTE [Concomitant]
     Active Substance: DIVALPROEX SODIUM
  8. HYDROCODONE W/APAP                 /00607101/ [Concomitant]
  9. EPIPEN [Concomitant]
     Active Substance: EPINEPHRINE
  10. LMX4 [Concomitant]
     Active Substance: LIDOCAINE
  11. MECLIZINE [Concomitant]
     Active Substance: MECLIZINE HYDROCHLORIDE
  12. ZYRTEC [Concomitant]
     Active Substance: CETIRIZINE HYDROCHLORIDE
  13. ZANTAC [Concomitant]
     Active Substance: RANITIDINE HYDROCHLORIDE
  14. DEXILANT [Concomitant]
     Active Substance: DEXLANSOPRAZOLE
  15. LORATADINE. [Concomitant]
     Active Substance: LORATADINE
  16. DIPHENHYDRAMINE. [Concomitant]
     Active Substance: DIPHENHYDRAMINE

REACTIONS (1)
  - Haemoptysis [Unknown]
